FAERS Safety Report 6054006-X (Version None)
Quarter: 2009Q1

REPORT INFORMATION
  Report Type: 
  Country: None (occurrence: None)
  Receive Date: 20090123
  Receipt Date: 20090123
  Transmission Date: 20090719
  Serious: Yes (Other)
  Sender: FDA-Public Use
  Company Number: None

PATIENT
  Age: 47 Year
  Sex: Male
  Weight: 86.1834 kg

DRUGS (1)
  1. CREST PRO-HEALTH RINSE PROCTOR AND GAMBLE [Suspect]
     Indication: ORAL SURGERY
     Dosage: 1 OZ 2 X DAILIY PO
     Route: 048
     Dates: start: 20081101, end: 20081231

REACTIONS (1)
  - TOOTH DISCOLOURATION [None]
